FAERS Safety Report 4302523-2 (Version None)
Quarter: 2004Q1

REPORT INFORMATION
  Report Type: 
  Country: None (occurrence: None)
  Receive Date: 20040223
  Receipt Date: 20040223
  Transmission Date: 20041129
  Serious: Yes (Death, Life-Threatening, Hospitalization)
  Sender: FDA-Public Use
  Company Number: None

PATIENT
  Age: 87 Year
  Sex: Female
  Weight: 67 kg

DRUGS (1)
  1. COUMADIN [Suspect]
     Dosage: PO
     Route: 048

REACTIONS (7)
  - COMPUTERISED TOMOGRAM ABNORMAL [None]
  - CONFUSIONAL STATE [None]
  - FALL [None]
  - GROIN PAIN [None]
  - HAEMORRHAGE [None]
  - PROTHROMBIN TIME PROLONGED [None]
  - RETROPERITONEAL HAEMORRHAGE [None]
